FAERS Safety Report 4323741-3 (Version None)
Quarter: 2004Q1

REPORT INFORMATION
  Report Type: 
  Country: None (occurrence: None)
  Receive Date: 20040323
  Receipt Date: 20040315
  Transmission Date: 20041129
  Serious: Yes (Other)
  Sender: FDA-Public Use
  Company Number: 2004GB00663

PATIENT
  Age: 24 Year
  Sex: Male
  Weight: 63.5 kg

DRUGS (1)
  1. SEROQUEL [Suspect]
     Indication: PSYCHOTIC DISORDER
     Dosage: 300 MG BID PO
     Route: 048
     Dates: start: 20040127, end: 20040224

REACTIONS (1)
  - NEUTROPENIA [None]
